FAERS Safety Report 6974172-9 (Version None)
Quarter: 2010Q3

REPORT INFORMATION
  Report Type: 
  Country: None (occurrence: None)
  Receive Date: 20100909
  Receipt Date: 20100908
  Transmission Date: 20110219
  Serious: Yes (Other)
  Sender: FDA-Public Use
  Company Number: AU-SANOFI-AVENTIS-2010SA050018

PATIENT
  Age: 61 Year
  Sex: Female
  Weight: 105.7 kg

DRUGS (4)
  1. SOLOSTAR [Suspect]
     Dates: start: 20100326
  2. APIDRA SOLOSTAR [Suspect]
     Indication: TYPE 2 DIABETES MELLITUS
     Route: 058
     Dates: start: 20100326
  3. SOLOSTAR [Suspect]
     Dates: start: 20100325
  4. LANTUS [Suspect]
     Indication: TYPE 2 DIABETES MELLITUS
     Route: 058
     Dates: start: 20100325

REACTIONS (1)
  - WRONG DRUG ADMINISTERED [None]
